FAERS Safety Report 9252424 (Version 2)
Quarter: 2013Q2

REPORT INFORMATION
  Report Type: Spontaneous
  Country: US (occurrence: US)
  Receive Date: 20130424
  Receipt Date: 20130617
  Transmission Date: 20140414
  Serious: No
  Sender: FDA-Public Use
  Company Number: US-009507513-1304USA014347

PATIENT
  Sex: 0

DRUGS (1)
  1. NUVARING [Suspect]
     Dosage: 3 WEEKS IN AND ONE WEEK OUT
     Route: 067

REACTIONS (3)
  - Device expulsion [Unknown]
  - Device breakage [Unknown]
  - No adverse event [Unknown]
